FAERS Safety Report 7610342 (Version 10)
Quarter: 2013Q2

REPORT INFORMATION
  Report Type: Spontaneous
  Country: US (occurrence: US)
  Receive Date: 20100928
  Receipt Date: 20130510
  Transmission Date: 20140414
  Serious: Yes (Hospitalization, Other)
  Sender: FDA-Public Use
  Company Number: US-ASTRAZENECA-2010SE43765

PATIENT
  Age: 55 Year
  Sex: Female
  Weight: 99.8 kg

DRUGS (44)
  1. NEXIUM [Suspect]
     Route: 048
     Dates: start: 20020109
  2. NEXIUM [Suspect]
     Route: 048
     Dates: start: 20060912
  3. NEXIUM [Suspect]
     Route: 048
     Dates: end: 20100507
  4. NEXIUM [Suspect]
     Route: 048
  5. PRILOSEC [Suspect]
     Dosage: DAILY
     Route: 048
     Dates: start: 1989
  6. PRILOSEC [Suspect]
     Route: 048
  7. NORVASC [Concomitant]
  8. NORVASC [Concomitant]
  9. SIMVASTATIN [Concomitant]
     Route: 048
     Dates: start: 20060823
  10. SIMVASTATIN [Concomitant]
     Route: 048
  11. BENICAR [Concomitant]
     Route: 048
  12. GLIMEPIRIDE [Concomitant]
  13. GLIMEPIRIDE [Concomitant]
  14. MAGNESIUM OXIDE [Concomitant]
     Route: 048
  15. KLONOPIN [Concomitant]
     Dosage: AS NEEDED
  16. KLONOPIN [Concomitant]
  17. TRAMADOL [Concomitant]
     Indication: BACK PAIN
     Dosage: AS REQUIRED
  18. TRAZADONE [Concomitant]
     Dosage: 1-3  AS REQUIRED
  19. TRAZADONE [Concomitant]
  20. SOMA [Concomitant]
     Dosage: AS REQUIRED
  21. COMBIVENT [Concomitant]
     Route: 048
  22. ZYRTEC [Concomitant]
     Route: 048
  23. LANTUS [Concomitant]
     Dosage: 100 UNITS/ML
  24. ULTRACET [Concomitant]
     Dosage: 37.5-325 MG, ONCE A DAY
  25. VERAMYST [Concomitant]
     Route: 045
  26. MAGNESIUM SULFATE [Concomitant]
     Dosage: 3-4 GRAMS/100CC
     Route: 042
     Dates: start: 20100512
  27. SODIUM CHLORIDE [Concomitant]
     Route: 042
  28. CETYLPYRIDINIUM/BEZOCAIN/MENTHOL [Concomitant]
  29. HEPARIN [Concomitant]
     Dosage: 5000 UNITS/1 ML 3 TIMES A DAY
     Dates: start: 20100513
  30. ACETAMINOPHEN [Concomitant]
     Route: 048
  31. OLMESARTAN [Concomitant]
     Route: 048
     Dates: start: 20100512
  32. CALCIUM CARBONATE [Concomitant]
     Route: 048
     Dates: start: 20100513
  33. FAMOTIDINE [Concomitant]
     Route: 048
     Dates: start: 20100512
  34. FAMOTIDINE [Concomitant]
     Route: 048
  35. INSULIN REGULAR HUMAN [Concomitant]
     Dosage: 1-6 UNIT TID
     Route: 058
     Dates: start: 20100513
  36. SITAGLIPTIN/JANUVIA [Concomitant]
     Indication: TYPE 2 DIABETES MELLITUS
     Route: 048
     Dates: start: 20100513
  37. SITAGLIPTIN/JANUVIA [Concomitant]
     Indication: TYPE 2 DIABETES MELLITUS
     Route: 048
  38. MAGNESIUM GLUCONATE [Concomitant]
     Dosage: 1000 MG EVERY TWO HOURS
     Route: 048
     Dates: start: 20100513
  39. LORATADINE [Concomitant]
     Route: 048
  40. LOPERAMIDE [Concomitant]
     Route: 048
  41. ALTEPLASE [Concomitant]
     Dates: start: 20100513
  42. ERGOCALCIFEROL [Concomitant]
     Dosage: 50000 UNIT ONCE
     Route: 048
     Dates: start: 20100514
  43. TOPROL XL [Concomitant]
     Dates: start: 20060912
  44. DETROL LA [Concomitant]
     Dates: start: 20060913

REACTIONS (84)
  - Precancerous skin lesion [Unknown]
  - Fibromyalgia [Unknown]
  - Polyuria [Unknown]
  - Arrhythmia [Unknown]
  - Genital abscess [Recovering/Resolving]
  - Leukocytosis [Recovered/Resolved]
  - Palpitations [Unknown]
  - Foot fracture [Unknown]
  - Gastrointestinal disorder [Unknown]
  - Diarrhoea [Unknown]
  - Hypomagnesaemia [Recovering/Resolving]
  - Change of bowel habit [Unknown]
  - Barrett^s oesophagus [Unknown]
  - Tinnitus [Unknown]
  - Nasal congestion [Unknown]
  - Ear pain [Unknown]
  - Hearing impaired [Unknown]
  - Muscle spasms [Unknown]
  - Fatigue [Unknown]
  - Apathy [Unknown]
  - Apnoea [Unknown]
  - Irritability [Unknown]
  - Muscle twitching [Unknown]
  - Memory impairment [Unknown]
  - Learning disorder [Unknown]
  - Mitral valve prolapse [Unknown]
  - Heart rate increased [Unknown]
  - Delirium [Unknown]
  - Mental status changes [Unknown]
  - Tremor [Unknown]
  - Deafness [Unknown]
  - Blood pressure fluctuation [Unknown]
  - Personality change [Unknown]
  - Dyspnoea [Unknown]
  - Stress urinary incontinence [Unknown]
  - Cellulitis [Recovering/Resolving]
  - Tympanic membrane perforation [Unknown]
  - Gastritis [Unknown]
  - Hiatus hernia [Unknown]
  - Steatorrhoea [Unknown]
  - Electrolyte imbalance [Unknown]
  - Diverticulum intestinal [Unknown]
  - Haemorrhoids [Unknown]
  - Chest discomfort [Recovered/Resolved]
  - Pulmonary hypertension [Unknown]
  - Generalised anxiety disorder [Unknown]
  - Cystitis [Unknown]
  - Conjunctivitis [Unknown]
  - Somatisation disorder [Unknown]
  - Personality disorder [Unknown]
  - Ear pruritus [Unknown]
  - Uterine leiomyoma [Unknown]
  - Urinary tract infection [Unknown]
  - Limb injury [Unknown]
  - Muscle atrophy [Unknown]
  - Pneumonia [Unknown]
  - Pollakiuria [Unknown]
  - Back pain [Unknown]
  - Cough [Unknown]
  - Sinusitis [Unknown]
  - Chronic obstructive pulmonary disease [Unknown]
  - Sleep apnoea syndrome [Unknown]
  - Hypersomnia [Unknown]
  - Weight increased [Unknown]
  - Nicotine dependence [Unknown]
  - Throat irritation [Unknown]
  - Tachycardia [Unknown]
  - Oropharyngeal pain [Unknown]
  - Arthropod bite [Unknown]
  - Tooth loss [Unknown]
  - Disturbance in attention [Unknown]
  - Attention deficit/hyperactivity disorder [Unknown]
  - Anxiety [Unknown]
  - Diabetes mellitus [Unknown]
  - Hypoaesthesia [Unknown]
  - Vertigo [Unknown]
  - Agitation [Unknown]
  - Muscular weakness [Unknown]
  - Nausea [Unknown]
  - Insomnia [Unknown]
  - Confusional state [Unknown]
  - Paraesthesia [Unknown]
  - Pyrexia [Unknown]
  - Vomiting [Unknown]
